FAERS Safety Report 8858174 (Version 1)
Quarter: 2012Q4

REPORT INFORMATION
  Report Type: 
  Country: US (occurrence: US)
  Receive Date: 20121024
  Receipt Date: 20121024
  Transmission Date: 20130627
  Serious: Yes (Hospitalization)
  Sender: FDA-Public Use
  Company Number: US-AMGEN-USASP2011066630

PATIENT
  Age: 59 Year
  Sex: Female

DRUGS (1)
  1. ENBREL [Suspect]
     Indication: RHEUMATOID ARTHRITIS
     Dosage: 50 mg, qwk
     Dates: start: 20100913, end: 20111001

REACTIONS (6)
  - Staphylococcal infection [Recovered/Resolved]
  - Sepsis [Not Recovered/Not Resolved]
  - Streptococcal infection [Recovered/Resolved]
  - Localised infection [Recovered/Resolved]
  - Skin injury [Recovered/Resolved]
  - Rheumatoid arthritis [Not Recovered/Not Resolved]
